FAERS Safety Report 6938362-3 (Version None)
Quarter: 2010Q3

REPORT INFORMATION
  Report Type: 
  Country: None (occurrence: None)
  Receive Date: 20100824
  Receipt Date: 20100812
  Transmission Date: 20110219
  Serious: Yes (Other)
  Sender: FDA-Public Use
  Company Number: BR-PFIZER INC-2010097461

PATIENT
  Age: 56 Year
  Sex: Male
  Weight: 78 kg

DRUGS (2)
  1. VIAGRA [Suspect]
     Indication: ERECTILE DYSFUNCTION
     Dosage: 1 TABLET, AS NEEDED
     Route: 048
     Dates: start: 20060101
  2. SILDENAFIL [Suspect]
     Dosage: UNK

REACTIONS (8)
  - BLOOD PRESSURE INCREASED [None]
  - ERECTILE DYSFUNCTION [None]
  - ERECTION INCREASED [None]
  - ERYTHEMA [None]
  - FEELING HOT [None]
  - HYPOAESTHESIA ORAL [None]
  - PAIN IN EXTREMITY [None]
  - POLLAKIURIA [None]
